FAERS Safety Report 7311284-4 (Version None)
Quarter: 2011Q1

REPORT INFORMATION
  Report Type: 
  Country: None (occurrence: None)
  Receive Date: 20110224
  Receipt Date: 20110211
  Transmission Date: 20110831
  Serious: Yes (Death, Hospitalization)
  Sender: FDA-Public Use
  Company Number: US-ACTELION-A-US2010-37249

PATIENT

DRUGS (10)
  1. ATROVENT [Concomitant]
  2. MULTI-VITAMIN [Concomitant]
  3. DOBUTAMINE HCL [Concomitant]
  4. TRACLEER [Suspect]
     Indication: PULMONARY HYPERTENSION
     Dosage: UNK
     Route: 048
     Dates: end: 20100528
  5. PREDNISONE [Concomitant]
  6. LORCET-HD [Concomitant]
  7. OXYGEN [Concomitant]
  8. FUROSEMIDE [Concomitant]
  9. CALTRATE [Concomitant]
  10. ASPIRIN [Concomitant]

REACTIONS (10)
  - PULMONARY FIBROSIS [None]
  - HYPOTENSION [None]
  - RIGHT VENTRICULAR FAILURE [None]
  - HYPOXIA [None]
  - CYANOSIS [None]
  - FLUID OVERLOAD [None]
  - OEDEMA PERIPHERAL [None]
  - DYSPNOEA [None]
  - BLOOD UREA INCREASED [None]
  - PULMONARY HYPERTENSION [None]
